FAERS Safety Report 6635557-3 (Version None)
Quarter: 2010Q1

REPORT INFORMATION
  Report Type: 
  Country: None (occurrence: None)
  Receive Date: 20100315
  Receipt Date: 20100126
  Transmission Date: 20100710
  Serious: No
  Sender: FDA-Public Use
  Company Number: US-ABBOTT-10P-163-0618170-00

PATIENT
  Sex: Male
  Weight: 29.056 kg

DRUGS (6)
  1. DEPAKOTE [Suspect]
     Indication: CONVULSION
     Dates: start: 20091205, end: 20091216
  2. DEPAKOTE [Suspect]
     Route: 048
  3. DEPAKOTE ER [Suspect]
     Indication: DRUG USE FOR UNKNOWN INDICATION
  4. DEPAKOTE [Suspect]
     Indication: CONVULSION
     Dates: start: 20090401, end: 20091205
  5. VALIUM [Suspect]
     Indication: CONVULSION
     Dosage: HS
     Dates: start: 20050101
  6. DIASET [Concomitant]
     Indication: CONVULSION

REACTIONS (11)
  - ABDOMINAL PAIN [None]
  - ABDOMINAL PAIN UPPER [None]
  - DIARRHOEA [None]
  - DRUG LEVEL FLUCTUATING [None]
  - DRUG TOXICITY [None]
  - HALLUCINATION [None]
  - HOT FLUSH [None]
  - PALLOR [None]
  - RASH MACULAR [None]
  - SOMNOLENCE [None]
  - VOMITING [None]
